FAERS Safety Report 6625698-9 (Version None)
Quarter: 2010Q1

REPORT INFORMATION
  Report Type: 
  Country: None (occurrence: None)
  Receive Date: 20100310
  Receipt Date: 20100302
  Transmission Date: 20100710
  Serious: Yes (Death, Hospitalization)
  Sender: FDA-Public Use
  Company Number: FR-SANOFI-AVENTIS-2010SA005658

PATIENT
  Age: 81 Year
  Sex: Female

DRUGS (7)
  1. LASIX [Suspect]
     Route: 048
  2. CORDARONE [Suspect]
     Indication: ARRHYTHMIA
     Route: 048
  3. PREVISCAN [Suspect]
     Indication: ATRIAL FIBRILLATION
     Route: 048
     Dates: end: 20081211
  4. NEXIUM /UNK/ [Suspect]
     Indication: DRUG USE FOR UNKNOWN INDICATION
     Route: 048
  5. STABLON [Suspect]
     Indication: DEPRESSION
     Route: 048
  6. DIFFU K [Concomitant]
     Route: 048
  7. SERESTA [Concomitant]
     Indication: ANXIETY
     Route: 048

REACTIONS (1)
  - INTERNATIONAL NORMALISED RATIO INCREASED [None]
